FAERS Safety Report 10088824 (Version 1)
Quarter: 2014Q2

REPORT INFORMATION
  Report Type: Spontaneous
  Country: US (occurrence: US)
  Receive Date: 20140421
  Receipt Date: 20140421
  Transmission Date: 20141212
  Serious: No
  Sender: FDA-Public Use
  Company Number: US-JNJFOC-20140405707

PATIENT
  Age: 64 Year
  Sex: Female
  Weight: 65.77 kg

DRUGS (8)
  1. DURAGESIC [Suspect]
     Indication: BACK PAIN
     Route: 062
  2. PERCOCET [Concomitant]
     Indication: PAIN
     Route: 048
     Dates: start: 1975
  3. PREVACID [Concomitant]
     Indication: GASTRIC DISORDER
     Route: 048
  4. ZETIA [Concomitant]
     Indication: BLOOD CHOLESTEROL
     Route: 048
  5. ADALAT [Concomitant]
     Indication: BLOOD PRESSURE
     Route: 048
  6. CARVEDILOL [Concomitant]
     Indication: BLOOD PRESSURE
     Route: 048
     Dates: start: 201403
  7. ASPIRIN [Concomitant]
     Route: 048
  8. CELEBREX [Concomitant]
     Indication: INFLAMMATION
     Route: 048

REACTIONS (8)
  - Exposure via blood [Unknown]
  - Drug dose omission [Unknown]
  - Fall [Not Recovered/Not Resolved]
  - Pruritus [Unknown]
  - Anxiety [Not Recovered/Not Resolved]
  - Feeling cold [Not Recovered/Not Resolved]
  - Drug administered at inappropriate site [Unknown]
  - Back disorder [Unknown]
